FAERS Safety Report 11646715 (Version 1)
Quarter: 2015Q4

REPORT INFORMATION
  Report Type: Spontaneous
  Country: US (occurrence: US)
  Receive Date: 20151020
  Receipt Date: 20151020
  Transmission Date: 20160304
  Serious: No
  Sender: FDA-Public Use
  Company Number: US-ROCHE-ITM201506IM018508

PATIENT
  Age: 52 Year
  Sex: Male
  Weight: 83.99 kg

DRUGS (3)
  1. ESBRIET [Suspect]
     Active Substance: PIRFENIDONE
     Dosage: TOTAL: 3 CAPSULES
     Route: 048
  2. ESBRIET [Suspect]
     Active Substance: PIRFENIDONE
     Indication: IDIOPATHIC PULMONARY FIBROSIS
     Dosage: TOTAL 6 CAPSULES (2 CAPSULES TID)
     Route: 048
     Dates: start: 20150513
  3. PREDNISONE. [Concomitant]
     Active Substance: PREDNISONE
     Indication: PULMONARY FIBROSIS
     Route: 048

REACTIONS (4)
  - Weight increased [Unknown]
  - Cough [Unknown]
  - Dizziness [Unknown]
  - Nocturia [Unknown]
